FAERS Safety Report 8244499-1 (Version None)
Quarter: 2012Q1

REPORT INFORMATION
  Report Type: 
  Country: None (occurrence: None)
  Receive Date: 20120329
  Receipt Date: 20120326
  Transmission Date: 20120608
  Serious: Yes (Other)
  Sender: FDA-Public Use
  Company Number: PHHY2012AR026616

PATIENT
  Sex: Male

DRUGS (1)
  1. EXFORGE [Suspect]
     Dosage: 2 DF (160/5 MG, DAILY
     Dates: end: 20120201

REACTIONS (2)
  - HEARING IMPAIRED [None]
  - PRURITUS [None]
